FAERS Safety Report 19488800 (Version 1)
Quarter: 2021Q3

REPORT INFORMATION
  Report Type: Spontaneous
  Country: SE (occurrence: NL)
  Receive Date: 20210702
  Receipt Date: 20210702
  Transmission Date: 20211014
  Serious: Yes (Congenital Anomaly, Other)
  Sender: FDA-Public Use
  Company Number: SE-PFIZER INC-2021590084

PATIENT

DRUGS (3)
  1. OXCARBAZEPINE. [Suspect]
     Active Substance: OXCARBAZEPINE
     Dosage: DURING 1ST AND 2ND TRIMESTER OF PREGNANCY
     Route: 064
  2. LORAZEPAM. [Suspect]
     Active Substance: LORAZEPAM
     Dosage: DURING 1ST AND 2ND TRIMESTER OF PREGNANCY
     Route: 064
  3. CLOBAZAM. [Suspect]
     Active Substance: CLOBAZAM
     Dosage: 10 MG, DAILY DURING 1ST AND 2ND TRIMESTER OF PREGNANCY
     Route: 064

REACTIONS (2)
  - Maternal exposure during pregnancy [Unknown]
  - Anencephaly [Unknown]
